FAERS Safety Report 23852917 (Version 1)
Quarter: 2024Q2

REPORT INFORMATION
  Report Type: Spontaneous
  Country: PL (occurrence: None)
  Receive Date: 20240514
  Receipt Date: 20240514
  Transmission Date: 20240715
  Serious: Yes (Hospitalization, Other)
  Sender: FDA-Public Use
  Company Number: PL-MLMSERVICE-20240502-PI047733-00218-1

PATIENT
  Age: 72 Year
  Sex: Male

DRUGS (3)
  1. METHOTREXATE [Suspect]
     Active Substance: METHOTREXATE
     Indication: Rheumatoid arthritis
     Dosage: DOSAGE: 7.5 MG (THREE 2.5 MG TABLETS) TWICE A DAY (ONCE IN THE AFTERNOON AND EVENING)
  2. METHOTREXATE [Suspect]
     Active Substance: METHOTREXATE
     Dosage: EXCEPT FOR THE FIRST AND LAST DAYS, WHEN HE WAS GIVEN 7.5 MG/DAY
  3. METHOTREXATE [Suspect]
     Active Substance: METHOTREXATE
     Dosage: DURING THE SEVEN DAYS OF THE PATIENT^S HOSPITALISATION, 15 MG OF MTX WAS ACCIDENTALLY ADMINISTERED D

REACTIONS (6)
  - Accidental overdose [Unknown]
  - Product dispensing issue [Unknown]
  - Inappropriate schedule of product administration [Unknown]
  - Toxicity to various agents [Recovering/Resolving]
  - Leukopenia [Recovering/Resolving]
  - Thrombocytopenia [Recovering/Resolving]
